FAERS Safety Report 4630358-X (Version None)
Quarter: 2005Q2

REPORT INFORMATION
  Report Type: 
  Country: None (occurrence: None)
  Receive Date: 20050406
  Receipt Date: 20050329
  Transmission Date: 20051028
  Serious: Yes (Hospitalization, Other)
  Sender: FDA-Public Use
  Company Number: 2005008382

PATIENT
  Age: 34 Year
  Sex: Female
  Weight: 65.318 kg

DRUGS (5)
  1. RELPAX [Suspect]
     Indication: MIGRAINE
     Dosage: 40 MG (40 MG, 1 IN 1 D), ORAL
     Route: 048
     Dates: start: 20041217, end: 20041201
  2. NITROGLYCERIN [Suspect]
     Indication: ILL-DEFINED DISORDER
     Dates: end: 20041201
  3. METFORMIN HCL [Concomitant]
  4. CILST (ETHINYLESTRADIOL, NORGESTRIMATE) [Concomitant]
  5. CETIRIZINE HCL [Concomitant]

REACTIONS (11)
  - ARTERIAL SPASM [None]
  - CORONARY ARTERY OCCLUSION [None]
  - CORONARY ARTERY THROMBOSIS [None]
  - FLUSHING [None]
  - HEADACHE [None]
  - HYPOTENSION [None]
  - MYOCARDIAL INFARCTION [None]
  - NAUSEA [None]
  - PAIN IN EXTREMITY [None]
  - VASOCONSTRICTION [None]
  - WEIGHT DECREASED [None]
